FAERS Safety Report 21959204 (Version 5)
Quarter: 2023Q2

REPORT INFORMATION
  Report Type: Report from Study
  Country: US (occurrence: None)
  Receive Date: 20230206
  Receipt Date: 20230612
  Transmission Date: 20230722
  Serious: Yes (Death, Hospitalization)
  Sender: FDA-Public Use
  Company Number: US-Eisai Medical Research-EC-2022-123944

PATIENT
  Age: 79 Year
  Sex: Female
  Weight: 68.3 kg

DRUGS (9)
  1. LECANEMAB [Suspect]
     Active Substance: LECANEMAB
     Indication: Dementia Alzheimer^s type
     Dosage: PLACEBO
     Route: 042
     Dates: start: 20210222, end: 20220725
  2. LECANEMAB [Suspect]
     Active Substance: LECANEMAB
     Dosage: OPEN LABEL
     Route: 042
     Dates: start: 20220808, end: 202208
  3. LECANEMAB [Suspect]
     Active Substance: LECANEMAB
     Dosage: OPEN LABEL
     Route: 042
     Dates: start: 20220907, end: 20220907
  4. OMEPRAZOLE [Concomitant]
     Active Substance: OMEPRAZOLE
  5. FLUOXETINE [Concomitant]
     Active Substance: FLUOXETINE HYDROCHLORIDE
  6. ATORVASTATIN [Concomitant]
     Active Substance: ATORVASTATIN
  7. VITAMIN D3 [Concomitant]
     Active Substance: CHOLECALCIFEROL
  8. VITAMINS [Concomitant]
     Active Substance: VITAMINS
  9. COVID VACCINE [Concomitant]

REACTIONS (2)
  - Amyloid related imaging abnormality-oedema/effusion [Fatal]
  - Amyloid related imaging abnormality-microhaemorrhages and haemosiderin deposits [Fatal]

NARRATIVE: CASE EVENT DATE: 20220914
